FAERS Safety Report 24374888 (Version 2)
Quarter: 2024Q4

REPORT INFORMATION
  Report Type: Spontaneous
  Country: JP (occurrence: JP)
  Receive Date: 20240927
  Receipt Date: 20241004
  Transmission Date: 20250115
  Serious: Yes (Hospitalization)
  Sender: BRACCO
  Company Number: JP-BAYER-2024A135849

PATIENT
  Age: 64 Year
  Sex: Male

DRUGS (1)
  1. IOPAMIRON [Suspect]
     Active Substance: IOPAMIDOL
     Indication: Diagnostic procedure
     Dosage: UNK, ONCE
     Dates: start: 20240920, end: 20240920

REACTIONS (4)
  - Contrast media allergy [Unknown]
  - Blood pressure decreased [Unknown]
  - Dyspnoea [Unknown]
  - Feeling abnormal [Unknown]

NARRATIVE: CASE EVENT DATE: 20240920
